FAERS Safety Report 18973037 (Version 1)
Quarter: 2021Q1

REPORT INFORMATION
  Report Type: Spontaneous
  Country: US (occurrence: US)
  Receive Date: 20210305
  Receipt Date: 20210305
  Transmission Date: 20210420
  Serious: No
  Sender: FDA-Public Use
  Company Number: US-ALVOGEN-2021-ALVOGEN-116656

PATIENT

DRUGS (1)
  1. NITROFURANTOIN. [Suspect]
     Active Substance: NITROFURANTOIN
     Indication: PRODUCT USED FOR UNKNOWN INDICATION

REACTIONS (5)
  - Rash [Unknown]
  - Nausea [Unknown]
  - Drug hypersensitivity [Unknown]
  - Vomiting [Unknown]
  - Headache [Unknown]
